FAERS Safety Report 4730757-1 (Version None)
Quarter: 2005Q3

REPORT INFORMATION
  Report Type: 
  Country: None (occurrence: None)
  Receive Date: 20050725
  Receipt Date: 20050513
  Transmission Date: 20060218
  Serious: No
  Sender: FDA-Public Use
  Company Number: USA050598341

PATIENT
  Age: 9 Year
  Sex: Male
  Weight: 25 kg

DRUGS (1)
  1. STRATTERA [Suspect]
     Dosage: 30 MG
     Dates: end: 20050201

REACTIONS (3)
  - MANIA [None]
  - THROAT IRRITATION [None]
  - TIC [None]
